FAERS Safety Report 16638366 (Version 1)
Quarter: 2019Q3

REPORT INFORMATION
  Report Type: Spontaneous
  Country: CN (occurrence: CN)
  Receive Date: 20190726
  Receipt Date: 20190726
  Transmission Date: 20191004
  Serious: Yes (Death, Hospitalization)
  Sender: FDA-Public Use
  Company Number: CN-ASTRAZENECA-2019SF06940

PATIENT
  Age: 27025 Day
  Sex: Female

DRUGS (1)
  1. LYNPARZA [Suspect]
     Active Substance: OLAPARIB
     Indication: MALIGNANT PERITONEAL NEOPLASM
     Dosage: 300 MG EACH TIME
     Route: 048

REACTIONS (6)
  - Nervous system disorder [Fatal]
  - Coronary artery disease [Fatal]
  - Lung neoplasm malignant [Fatal]
  - Metastases to central nervous system [Fatal]
  - Cerebral ischaemia [Fatal]
  - Arrhythmia [Fatal]

NARRATIVE: CASE EVENT DATE: 20190102
